FAERS Safety Report 24102753 (Version 7)
Quarter: 2024Q4

REPORT INFORMATION
  Report Type: Spontaneous
  Country: CA (occurrence: CA)
  Receive Date: 20240717
  Receipt Date: 20241212
  Transmission Date: 20250114
  Serious: Yes (Other)
  Sender: CELLTRION
  Company Number: CA-PFIZER INC-202300414523

PATIENT

DRUGS (40)
  1. INFLECTRA [Suspect]
     Active Substance: INFLIXIMAB-DYYB
     Indication: Crohn^s disease
     Dosage: 5 MG/KG, WEEKLY (WEEK 0 DOSE)
     Route: 042
     Dates: start: 20200124, end: 20200124
  2. INFLECTRA [Suspect]
     Active Substance: INFLIXIMAB-DYYB
     Indication: Colitis ulcerative
     Dosage: 5 MG/KG, EVERY 4 WEEKS (WEEK 2 DOSE)
     Route: 042
     Dates: start: 20200211, end: 20200211
  3. INFLECTRA [Suspect]
     Active Substance: INFLIXIMAB-DYYB
     Dosage: 5 MG/KG, EVERY 8 WEEKS,  (WEEK 6 DOSE)
     Route: 042
     Dates: start: 20200311, end: 20200311
  4. INFLECTRA [Suspect]
     Active Substance: INFLIXIMAB-DYYB
     Dosage: 360 MG, EVERY 6 WEEKS
     Route: 042
     Dates: start: 20200506, end: 20200506
  5. INFLECTRA [Suspect]
     Active Substance: INFLIXIMAB-DYYB
     Dosage: 7.5 MG/KG, EVERY 6 WEEK (7 MG)
     Route: 042
     Dates: start: 20200618, end: 20200911
  6. INFLECTRA [Suspect]
     Active Substance: INFLIXIMAB-DYYB
     Dosage: 10 MG/KG, EVERY 6 WEEKS
     Route: 042
     Dates: start: 20201023, end: 20210226
  7. INFLECTRA [Suspect]
     Active Substance: INFLIXIMAB-DYYB
     Dosage: 10 MG/KG, EVERY 4 WEEKS
     Route: 042
     Dates: start: 20210326
  8. INFLECTRA [Suspect]
     Active Substance: INFLIXIMAB-DYYB
     Dosage: 10 MG/KG, EVERY 4 WEEKS
     Route: 042
     Dates: start: 20231026
  9. INFLECTRA [Suspect]
     Active Substance: INFLIXIMAB-DYYB
     Dosage: 10 MG/KG (715MG), EVERY 4 WEEKS
     Route: 042
     Dates: start: 20231124
  10. INFLECTRA [Suspect]
     Active Substance: INFLIXIMAB-DYYB
     Dosage: 10 MG/KG (715MG), EVERY 4 WEEKS
     Route: 042
     Dates: start: 20231124
  11. INFLECTRA [Suspect]
     Active Substance: INFLIXIMAB-DYYB
     Dosage: 10 MG/KG (700 MG), AFTER 3 WEEKS AND 6 DAYS
     Route: 042
     Dates: start: 20231221
  12. INFLECTRA [Suspect]
     Active Substance: INFLIXIMAB-DYYB
     Dosage: 10 MG/KG (700 MG), AFTER 3 WEEKS AND 6 DAYS
     Route: 042
     Dates: start: 20231221
  13. INFLECTRA [Suspect]
     Active Substance: INFLIXIMAB-DYYB
     Dosage: 10 MG/KG (737 MG), EVERY 4 WEEKS
     Route: 042
     Dates: start: 20240119
  14. INFLECTRA [Suspect]
     Active Substance: INFLIXIMAB-DYYB
     Dosage: 10 MG/KG (724 MG) EVERY 4 WEEKS
     Route: 042
     Dates: start: 20240216
  15. INFLECTRA [Suspect]
     Active Substance: INFLIXIMAB-DYYB
     Dosage: 10 MG/KG EVERY 4 WEEKS
     Route: 042
     Dates: start: 20240216
  16. INFLECTRA [Suspect]
     Active Substance: INFLIXIMAB-DYYB
     Dosage: 10 MG/KG EVERY 4 WEEKS(708 MG 3 WEEKS 6 DAYS)
     Route: 042
     Dates: start: 20240314
  17. INFLECTRA [Suspect]
     Active Substance: INFLIXIMAB-DYYB
     Dosage: 10 MG/KG EVERY 4 WEEKS(708 MG 3 WEEKS 6 DAYS)
     Route: 042
     Dates: start: 20240412
  18. INFLECTRA [Suspect]
     Active Substance: INFLIXIMAB-DYYB
     Dosage: 10 MG/KG EVERY 4 WEEKS(685MG, 10MG/KG, EVERY 4 WEEKS)
     Route: 042
     Dates: start: 20240509
  19. INFLECTRA [Suspect]
     Active Substance: INFLIXIMAB-DYYB
     Dosage: 10 MG/KG EVERY 4 WEEKS(685MG, 10MG/KG, EVERY 4 WEEKS)
     Route: 042
     Dates: start: 20240509
  20. INFLECTRA [Suspect]
     Active Substance: INFLIXIMAB-DYYB
     Dosage: 684 MG, AFTER 4 WEEKS (10 MG/KG, EVERY 4 WEEKS)
     Route: 042
     Dates: start: 20240607
  21. INFLECTRA [Suspect]
     Active Substance: INFLIXIMAB-DYYB
     Dosage: 671 MG,4 WEEKS(10MG,KG EVERY 4 WEEKS)
     Route: 042
     Dates: start: 20240705
  22. INFLECTRA [Suspect]
     Active Substance: INFLIXIMAB-DYYB
     Dosage: 663 MG (10 MG/KG EVERY 4 WEEKS)
     Route: 042
     Dates: start: 20240802
  23. INFLECTRA [Suspect]
     Active Substance: INFLIXIMAB-DYYB
     Dosage: 684MG, EVERY 4 WEEKS (10MG/KG)
     Route: 042
     Dates: start: 20240826
  24. INFLECTRA [Suspect]
     Active Substance: INFLIXIMAB-DYYB
     Dosage: 643 MG, AFTER 4 WEEKS (10 MG/KG EVERY 4 WEEKS)
     Route: 042
     Dates: start: 20240925
  25. INFLECTRA [Suspect]
     Active Substance: INFLIXIMAB-DYYB
     Dosage: 645 MG, EVERY 4 WEEKS  (10 MG/KG)
     Route: 042
     Dates: start: 20241023
  26. INFLECTRA [Suspect]
     Active Substance: INFLIXIMAB-DYYB
     Dosage: 645 MG, EVERY 4 WEEKS  (10 MG/KG)
     Route: 042
     Dates: start: 20241023
  27. INFLECTRA [Suspect]
     Active Substance: INFLIXIMAB-DYYB
     Dosage: 650 MG, EVERY 4 WEEKS (10 MG/KG)
     Route: 042
     Dates: start: 20241121
  28. ASPIRIN [Concomitant]
     Active Substance: ASPIRIN
     Dosage: 81 MG
  29. BASAGLAR [Concomitant]
     Active Substance: INSULIN GLARGINE
     Dosage: 19 IU
  30. PERINDOPRIL ARGININE [Concomitant]
     Active Substance: PERINDOPRIL ARGININE
     Dosage: 8 UG
  31. ENTOCORT [Concomitant]
     Active Substance: BUDESONIDE
     Dosage: 1 DF
  32. LEVOTHYROXINE [Concomitant]
     Active Substance: LEVOTHYROXINE
     Dosage: 50 UG
  33. IMURAN [Concomitant]
     Active Substance: AZATHIOPRINE
     Dosage: 50 MG,DOSAGE FREQUENCY: UNKNOWN
     Route: 048
  34. IMURAN [Concomitant]
     Active Substance: AZATHIOPRINE
     Dosage: 100 MG,DOSAGE FREQUENCY: UNKNOWN
     Route: 048
  35. JARDIANCE [Concomitant]
     Active Substance: EMPAGLIFLOZIN
     Dosage: 25 MG
  36. LANSOPRAZOLE [Concomitant]
     Active Substance: LANSOPRAZOLE
     Dosage: 30 MG
  37. PREDNISONE [Concomitant]
     Active Substance: PREDNISONE
     Dosage: UNK
  38. ROSUVASTATIN [Concomitant]
     Active Substance: ROSUVASTATIN
     Dosage: 10 MG
  39. SULFASALAZINE [Concomitant]
     Active Substance: SULFASALAZINE
     Dosage: 500 MG,DOSAGE FREQUENCY: UNKNOWN
     Route: 048
  40. SYNTHROID [Concomitant]
     Active Substance: LEVOTHYROXINE SODIUM
     Dosage: 0.112 MG

REACTIONS (5)
  - Weight decreased [Not Recovered/Not Resolved]
  - Condition aggravated [Not Recovered/Not Resolved]
  - Drug ineffective [Unknown]
  - Off label use [Unknown]
  - Intentional product use issue [Unknown]

NARRATIVE: CASE EVENT DATE: 20231124
